FAERS Safety Report 9812804 (Version 1)
Quarter: 2014Q1

REPORT INFORMATION
  Report Type: Spontaneous
  Country: US (occurrence: None)
  Receive Date: 20140108
  Receipt Date: 20140108
  Transmission Date: 20141002
  Serious: Yes (Hospitalization, Other)
  Sender: FDA-Public Use
  Company Number: DAV-AE-MTX-13-70

PATIENT
  Age: 29 Year
  Sex: Male

DRUGS (1)
  1. METHOTREXATE [Suspect]
     Indication: PSORIASIS
     Dosage: TEST DOSE 2.5 MG FOLLOWED BY 2.5 MG 12H LATER, UNKNOWN

REACTIONS (4)
  - Dermatitis bullous [None]
  - Drug eruption [None]
  - Leukocytosis [None]
  - Staphylococcus test positive [None]
